FAERS Safety Report 26171938 (Version 1)
Quarter: 2025Q4

REPORT INFORMATION
  Report Type: Report from Study
  Country: US (occurrence: US)
  Receive Date: 20251217
  Receipt Date: 20251217
  Transmission Date: 20260117
  Serious: Yes (Other)
  Sender: ELI LILLY AND COMPANY
  Company Number: US-ELI_LILLY_AND_COMPANY-US202502009051

PATIENT
  Age: 77 Year
  Sex: Male

DRUGS (7)
  1. KISUNLA [Suspect]
     Active Substance: DONANEMAB-AZBT
     Indication: Product used for unknown indication
     Dosage: UNK UNK, UNKNOWN
     Route: 065
  2. KISUNLA [Suspect]
     Active Substance: DONANEMAB-AZBT
     Dosage: UNK, UNKNOWN
     Route: 065
     Dates: start: 20241206
  3. KISUNLA [Suspect]
     Active Substance: DONANEMAB-AZBT
     Dosage: 1400 MG, UNKNOWN
     Route: 065
  4. KISUNLA [Suspect]
     Active Substance: DONANEMAB-AZBT
     Dosage: UNK (4TH INFUSION)
     Route: 065
  5. KISUNLA [Suspect]
     Active Substance: DONANEMAB-AZBT
     Dosage: UNK (5TH INFUSION)
     Route: 065
  6. DONEPEZIL [Concomitant]
     Active Substance: DONEPEZIL
     Indication: Memory impairment
     Dosage: UNK, UNKNOWN
     Route: 065
  7. MEMANTINE [Concomitant]
     Active Substance: MEMANTINE
     Indication: Memory impairment
     Dosage: UNK, UNKNOWN
     Route: 065

REACTIONS (10)
  - Amyloid related imaging abnormality-oedema/effusion [Recovered/Resolved]
  - Cerebral haemorrhage [Recovered/Resolved]
  - Balance disorder [Unknown]
  - Feeling abnormal [Unknown]
  - Agitation [Unknown]
  - Blood pressure decreased [Unknown]
  - Asthenia [Unknown]
  - Fatigue [Unknown]
  - Memory impairment [Unknown]
  - Dizziness [Unknown]
